FAERS Safety Report 8662434 (Version 3)
Quarter: 2012Q4

REPORT INFORMATION
  Report Type: Report from Study
  Country: CA (occurrence: CA)
  Receive Date: 20120712
  Receipt Date: 20121025
  Transmission Date: 20130627
  Serious: Yes (Hospitalization)
  Sender: FDA-Public Use
  Company Number: CA-BRISTOL-MYERS SQUIBB COMPANY-16262297

PATIENT
  Age: 65 Year
  Sex: Female

DRUGS (9)
  1. IPILIMUMAB [Suspect]
     Indication: MALIGNANT MELANOMA
     Dosage: 18Oct11
Reinduction 200mg on 13Apr12-15Jun12
     Route: 042
     Dates: start: 20110817
  2. METOPROLOL [Concomitant]
     Route: 048
     Dates: start: 2008
  3. DEXAMETHASONE [Concomitant]
     Dates: start: 20111007
  4. L-THYROXINE [Concomitant]
     Route: 048
     Dates: start: 20111104
  5. RANITIDINE [Concomitant]
     Route: 048
     Dates: start: 20111011
  6. DIOVAN [Concomitant]
     Route: 048
     Dates: start: 2009
  7. LEVAQUIN [Concomitant]
     Dates: start: 20111129
  8. DILANTIN [Concomitant]
     Dates: start: 201112
  9. MULTIVITAMINS + IRON [Concomitant]
     Dates: start: 20120420

REACTIONS (2)
  - Convulsion [Recovered/Resolved with Sequelae]
  - Pyrexia [Recovered/Resolved]
